FAERS Safety Report 24362044 (Version 1)
Quarter: 2024Q3

REPORT INFORMATION
  Report Type: Spontaneous
  Country: US (occurrence: US)
  Receive Date: 20240925
  Receipt Date: 20240925
  Transmission Date: 20241017
  Serious: Yes (Death, Other)
  Sender: UCB
  Company Number: US-UCBSA-2024048889

PATIENT
  Sex: Male

DRUGS (2)
  1. LEVETIRACETAM [Interacting]
     Active Substance: LEVETIRACETAM
     Indication: Seizure
     Dosage: UNK
  2. METHOTREXATE [Interacting]
     Active Substance: METHOTREXATE
     Indication: Product used for unknown indication
     Dosage: 2.5 MILLIGRAM DAILY SIX DAYS PER WEEK FOR FEW MONTHS

REACTIONS (7)
  - Multiple organ dysfunction syndrome [Fatal]
  - Hepatic function abnormal [Fatal]
  - Acute kidney injury [Fatal]
  - Epidermal necrosis [Fatal]
  - Skin atrophy [Fatal]
  - Toxicity to various agents [Fatal]
  - Drug interaction [Fatal]
